FAERS Safety Report 21336870 (Version 2)
Quarter: 2022Q3

REPORT INFORMATION
  Report Type: Other
  Country: US (occurrence: None)
  Receive Date: 20220915
  Receipt Date: 20220920
  Transmission Date: 20221026
  Serious: No
  Sender: FDA-Public Use
  Company Number: US-ROCHE-3180070

PATIENT
  Age: 49 Year
  Sex: Female
  Weight: 77.180 kg

DRUGS (8)
  1. OCREVUS [Suspect]
     Active Substance: OCRELIZUMAB
     Indication: Relapsing multiple sclerosis
     Route: 042
     Dates: start: 20210902
  2. OCREVUS [Suspect]
     Active Substance: OCRELIZUMAB
     Route: 042
  3. OCREVUS [Suspect]
     Active Substance: OCRELIZUMAB
     Route: 042
  4. WELLBUTRIN XL [Concomitant]
     Active Substance: BUPROPION HYDROCHLORIDE
  5. PREVALITE [Concomitant]
     Active Substance: CHOLESTYRAMINE
  6. KLONOPIN [Concomitant]
     Active Substance: CLONAZEPAM
  7. SYNTHROID [Concomitant]
     Active Substance: LEVOTHYROXINE SODIUM
  8. NAPROSYN [Concomitant]
     Active Substance: NAPROXEN

REACTIONS (11)
  - Pharyngitis [Not Recovered/Not Resolved]
  - Dysphagia [Not Recovered/Not Resolved]
  - Choking [Unknown]
  - Cystitis [Unknown]
  - Bladder disorder [Unknown]
  - Oral fungal infection [Unknown]
  - Malaise [Unknown]
  - Illness [Unknown]
  - Oral candidiasis [Recovered/Resolved]
  - Fungal infection [Recovered/Resolved]
  - Cystitis [Not Recovered/Not Resolved]

NARRATIVE: CASE EVENT DATE: 20220301
